FAERS Safety Report 10821575 (Version 1)
Quarter: 2015Q1

REPORT INFORMATION
  Report Type: Spontaneous
  Country: US (occurrence: None)
  Receive Date: 20150213
  Receipt Date: 20150213
  Transmission Date: 20150721
  Serious: Yes (Hospitalization)
  Sender: FDA-Public Use
  Company Number: 1224850-2015-00011

PATIENT
  Age: 56 Year
  Sex: Male
  Weight: 97 kg

DRUGS (20)
  1. NORVASC [Concomitant]
     Active Substance: AMLODIPINE BESYLATE
  2. CALCITRIOL. [Concomitant]
     Active Substance: CALCITRIOL
  3. HYDROCHLOROTHIAZIDE. [Concomitant]
     Active Substance: HYDROCHLOROTHIAZIDE
  4. NEPHRO-VITE [Concomitant]
  5. PHOSLO [Suspect]
     Active Substance: CALCIUM ACETATE
     Indication: MINERAL METABOLISM DISORDER
     Route: 048
  6. DELFLEX [Concomitant]
     Active Substance: CALCIUM CHLORIDE\DEXTROSE MONOHYDRATE\MAGNESIUM CHLORIDE\SODIUM CHLORIDE\SODIUM LACTATE
  7. IRON SULFATE [Concomitant]
     Active Substance: FERROUS SULFATE ANHYDROUS
  8. LISINOPRIL. [Concomitant]
     Active Substance: LISINOPRIL
  9. LASIX [Concomitant]
     Active Substance: FUROSEMIDE
  10. PHOSLO [Suspect]
     Active Substance: CALCIUM ACETATE
     Indication: BONE DISORDER
     Route: 048
  11. ASPIRIN. [Concomitant]
     Active Substance: ASPIRIN
  12. SENSIPAR [Concomitant]
     Active Substance: CINACALCET HYDROCHLORIDE
  13. HUMALOG [Concomitant]
     Active Substance: INSULIN LISPRO
  14. PRAVASTATIN [Concomitant]
     Active Substance: PRAVASTATIN\PRAVASTATIN SODIUM
  15. VITAMIN D3 [Concomitant]
     Active Substance: CHOLECALCIFEROL
  16. AMLODIPINE [Concomitant]
     Active Substance: AMLODIPINE BESYLATE
  17. SODIUM BICARBONATE. [Concomitant]
     Active Substance: SODIUM BICARBONATE
  18. MINOXIDIL. [Concomitant]
     Active Substance: MINOXIDIL
  19. LIBERTY CYCLER [Concomitant]
     Active Substance: DEVICE
  20. LIBERTY CYCLER CASSETTE [Concomitant]
     Active Substance: DEVICE

REACTIONS (11)
  - Pericardial effusion [None]
  - Procedural hypotension [None]
  - Fluid overload [None]
  - Dizziness [None]
  - Abdominal pain [None]
  - Inappropriate schedule of drug administration [None]
  - Treatment noncompliance [None]
  - Cardiac tamponade [None]
  - Tachycardia [None]
  - Pericarditis uraemic [None]
  - Device malfunction [None]

NARRATIVE: CASE EVENT DATE: 20141123
